FAERS Safety Report 4591825-0 (Version None)
Quarter: 2005Q1

REPORT INFORMATION
  Report Type: 
  Country: None (occurrence: None)
  Receive Date: 20050222
  Receipt Date: 20050216
  Transmission Date: 20050727
  Serious: Yes (Other)
  Sender: FDA-Public Use
  Company Number: K200500230

PATIENT
  Age: 68 Year
  Sex: Male

DRUGS (4)
  1. ALTACE [Suspect]
     Indication: HYPERTENSION
     Dosage: 2.5 MG, BID, ORAL
     Route: 048
     Dates: start: 20000101, end: 20050110
  2. FELODIPINE [Suspect]
     Indication: HYPERTENSION
     Dosage: 2.5 MG, BID, ORAL
     Route: 048
     Dates: start: 20000101, end: 20050110
  3. FALITHROM ^FAHLBERG^ (PHENPROCUMON) [Concomitant]
  4. CARVEDILOL [Concomitant]

REACTIONS (1)
  - GINGIVAL HYPERPLASIA [None]
